FAERS Safety Report 24399439 (Version 1)
Quarter: 2024Q4

REPORT INFORMATION
  Report Type: Spontaneous
  Country: FR (occurrence: FR)
  Receive Date: 20241004
  Receipt Date: 20241004
  Transmission Date: 20250115
  Serious: Yes (Other)
  Sender: NOVITIUM PHARMA
  Company Number: FR-NOVITIUMPHARMA-2024FRNVP02065

PATIENT
  Age: 54 Year
  Sex: Female

DRUGS (6)
  1. PREDNISONE [Suspect]
     Active Substance: PREDNISONE
     Indication: Adult T-cell lymphoma/leukaemia
  2. CYCLOPHOSPHAMIDE [Concomitant]
     Active Substance: CYCLOPHOSPHAMIDE
     Indication: Adult T-cell lymphoma/leukaemia
  3. DOXORUBICIN [Concomitant]
     Active Substance: DOXORUBICIN
     Indication: Adult T-cell lymphoma/leukaemia
  4. ETOPOSIDE [Concomitant]
     Active Substance: ETOPOSIDE
     Indication: Adult T-cell lymphoma/leukaemia
  5. VINCRISTINE [Concomitant]
     Active Substance: VINCRISTINE
     Indication: Adult T-cell lymphoma/leukaemia
  6. METHOTREXATE [Concomitant]
     Active Substance: METHOTREXATE
     Indication: Adult T-cell lymphoma/leukaemia

REACTIONS (2)
  - Myocarditis [Unknown]
  - Drug ineffective [Unknown]
